FAERS Safety Report 23211261 (Version 1)
Quarter: 2023Q4

REPORT INFORMATION
  Report Type: Spontaneous
  Country: US (occurrence: None)
  Receive Date: 20231120
  Receipt Date: 20231120
  Transmission Date: 20240110
  Serious: Yes (Death)
  Sender: FDA-Public Use
  Company Number: None

PATIENT
  Age: 87 Year
  Sex: Male
  Weight: 73 kg

DRUGS (1)
  1. RIVAROXABAN [Suspect]
     Active Substance: RIVAROXABAN
     Indication: Atrial fibrillation
     Dosage: FREQUENCY : DAILY;?
     Route: 048
     Dates: start: 20221219, end: 20230823

REACTIONS (7)
  - Subarachnoid haemorrhage [None]
  - Subdural haemorrhage [None]
  - Coma scale abnormal [None]
  - Brain herniation [None]
  - Intraventricular haemorrhage [None]
  - Myocardial ischaemia [None]
  - Ischaemic cerebral infarction [None]

NARRATIVE: CASE EVENT DATE: 20230823
